FAERS Safety Report 11551594 (Version 1)
Quarter: 2015Q3

REPORT INFORMATION
  Report Type: Spontaneous
  Country: US (occurrence: US)
  Receive Date: 20150903
  Receipt Date: 20150903
  Transmission Date: 20151125
  Serious: No
  Sender: FDA-Public Use
  Company Number: US-ELI_LILLY_AND_COMPANY-US201207008545

PATIENT
  Sex: Male

DRUGS (1)
  1. HUMALOG [Suspect]
     Active Substance: INSULIN LISPRO
     Indication: TYPE 2 DIABETES MELLITUS
     Dosage: UNK, PRN

REACTIONS (6)
  - Influenza like illness [Unknown]
  - Drug effect incomplete [Unknown]
  - Abdominal discomfort [Unknown]
  - Vomiting [Unknown]
  - Hyperhidrosis [Unknown]
  - Underdose [Unknown]

NARRATIVE: CASE EVENT DATE: 20120719
